FAERS Safety Report 6534405-X (Version None)
Quarter: 2010Q1

REPORT INFORMATION
  Report Type: 
  Country: None (occurrence: None)
  Receive Date: 20100108
  Receipt Date: 20100108
  Transmission Date: 20100710
  Serious: No
  Sender: FDA-Public Use
  Company Number: None

PATIENT
  Age: 68 Year
  Sex: Male

DRUGS (2)
  1. ALLOPURINOL [Suspect]
     Indication: GOUT
     Dates: start: 20091207, end: 20091215
  2. SULFAMETHOXAZOLE AND TRIMETHOPRIM [Suspect]
     Indication: OSTEOMYELITIS
     Dates: start: 20091207, end: 20091215

REACTIONS (9)
  - COAGULOPATHY [None]
  - DRUG INTERACTION [None]
  - DYSPNOEA [None]
  - EOSINOPHILIA [None]
  - HYPOTENSION [None]
  - RENAL FAILURE [None]
  - TACHYPNOEA [None]
  - TRANSAMINASES INCREASED [None]
  - TUBULOINTERSTITIAL NEPHRITIS [None]
